FAERS Safety Report 5016027-5 (Version None)
Quarter: 2006Q2

REPORT INFORMATION
  Report Type: 
  Country: None (occurrence: None)
  Receive Date: 20060414
  Receipt Date: 20060313
  Transmission Date: 20061013
  Serious: No
  Sender: FDA-Public Use
  Company Number: 2006SP001219

PATIENT

DRUGS (1)
  1. LUNESTA [Suspect]
     Dosage: 2 MG; ORAL
     Route: 048

REACTIONS (3)
  - DIZZINESS [None]
  - EAR PAIN [None]
  - SOMNOLENCE [None]
